FAERS Safety Report 24200631 (Version 1)
Quarter: 2024Q3

REPORT INFORMATION
  Report Type: Spontaneous
  Country: US (occurrence: US)
  Receive Date: 20240812
  Receipt Date: 20240812
  Transmission Date: 20241017
  Serious: No
  Sender: ANI
  Company Number: US-ANIPHARMA-2024-US-037925

PATIENT
  Sex: Male

DRUGS (1)
  1. CORTICOTROPIN [Suspect]
     Active Substance: CORTICOTROPIN
     Indication: Pulmonary sarcoidosis
     Dosage: 80U/ML; 40 UNITS TWICE WEEKLY SC
     Route: 058
     Dates: start: 202406

REACTIONS (4)
  - Irritability [Unknown]
  - Restlessness [Unknown]
  - Insomnia [Unknown]
  - Feeling abnormal [Unknown]
